FAERS Safety Report 6598005-8 (Version None)
Quarter: 2010Q1

REPORT INFORMATION
  Report Type: 
  Country: None (occurrence: None)
  Receive Date: 20100223
  Receipt Date: 20091229
  Transmission Date: 20100710
  Serious: No
  Sender: FDA-Public Use
  Company Number: US-ALLERGAN-0917729US

PATIENT
  Sex: Female

DRUGS (1)
  1. BOTOX COSMETIC [Suspect]
     Indication: SKIN WRINKLING
     Dosage: 30 UNITS, SINGLE
     Route: 030
     Dates: start: 20091215, end: 20091215

REACTIONS (5)
  - DIZZINESS [None]
  - HEADACHE [None]
  - INFLUENZA [None]
  - NASAL CONGESTION [None]
  - OROPHARYNGEAL PAIN [None]
